FAERS Safety Report 16627409 (Version 10)
Quarter: 2021Q2

REPORT INFORMATION
  Report Type: Report from Study
  Country: CA (occurrence: CA)
  Receive Date: 20190724
  Receipt Date: 20210616
  Transmission Date: 20210716
  Serious: Yes (Other)
  Sender: FDA-Public Use
  Company Number: CA-JNJFOC-20190719772

PATIENT
  Age: 66 Year
  Sex: Female
  Weight: 72.3 kg

DRUGS (6)
  1. REMICADE [Suspect]
     Active Substance: INFLIXIMAB
     Indication: ANKYLOSING SPONDYLITIS
     Dosage: ON 01?JAN?2007, PATIENT HAD INFUSION?REMICADE TREATMENT ON 20 AUGUST 2020?LATEST INFUSION ON 26?OCT?
     Route: 042
     Dates: start: 2006
  2. REMICADE [Suspect]
     Active Substance: INFLIXIMAB
     Dosage: ON 25?APR?2020, PATIENT HAD INFUSION
     Route: 042
  3. REMICADE [Suspect]
     Active Substance: INFLIXIMAB
     Dosage: ON 20?AUG?2020, THE PATIENT RECEIVED INFUSION
     Route: 042
  4. REMICADE [Suspect]
     Active Substance: INFLIXIMAB
     Route: 042
  5. REMICADE [Suspect]
     Active Substance: INFLIXIMAB
     Dosage: ON 25?APR?2020, PATIENT HAD INFUSION
     Route: 042
  6. REMICADE [Suspect]
     Active Substance: INFLIXIMAB
     Route: 042
     Dates: start: 2006

REACTIONS (5)
  - Musculoskeletal chest pain [Recovered/Resolved]
  - Lyme disease [Recovered/Resolved]
  - Breast cancer [Recovered/Resolved]
  - Arthralgia [Recovered/Resolved]
  - Arthropod bite [Unknown]

NARRATIVE: CASE EVENT DATE: 201906
